FAERS Safety Report 4973157-1 (Version None)
Quarter: 2006Q2

REPORT INFORMATION
  Report Type: 
  Country: None (occurrence: None)
  Receive Date: 20060414
  Receipt Date: 20051004
  Transmission Date: 20061013
  Serious: Yes (Hospitalization, Disabling, Other)
  Sender: FDA-Public Use
  Company Number: US-MERCK-0510USA03585

PATIENT
  Age: 66 Year
  Sex: Male
  Weight: 107 kg

DRUGS (2)
  1. VIOXX [Suspect]
     Indication: OSTEOARTHRITIS
     Route: 048
     Dates: start: 20011001, end: 20040901
  2. ASPIRIN [Concomitant]
     Route: 065

REACTIONS (27)
  - ANAEMIA [None]
  - ANGINA PECTORIS [None]
  - AORTIC ANEURYSM [None]
  - AORTIC ANEURYSM RUPTURE [None]
  - AORTIC THROMBOSIS [None]
  - AORTITIS [None]
  - ARTERIOSCLEROSIS [None]
  - ATRIAL FIBRILLATION [None]
  - CHEST PAIN [None]
  - CONVULSION [None]
  - CORONARY ARTERY DISEASE [None]
  - DEAFNESS [None]
  - EMBOLIC CEREBRAL INFARCTION [None]
  - HYPERLIPIDAEMIA [None]
  - HYPERTENSION [None]
  - LEUKOCYTOSIS [None]
  - MIGRAINE [None]
  - MYOCARDIAL INFARCTION [None]
  - PEPTIC ULCER [None]
  - PERICARDITIS [None]
  - PULMONARY FIBROSIS [None]
  - PULMONARY HYPERTENSION [None]
  - PYREXIA [None]
  - TRANSIENT ISCHAEMIC ATTACK [None]
  - VENTRICULAR EXTRASYSTOLES [None]
  - VISUAL DISTURBANCE [None]
  - VOCAL CORD PARESIS [None]
